FAERS Safety Report 9193177 (Version 1)
Quarter: 2013Q1

REPORT INFORMATION
  Report Type: Spontaneous
  Country: US (occurrence: US)
  Receive Date: 20130327
  Receipt Date: 20130327
  Transmission Date: 20140127
  Serious: No
  Sender: FDA-Public Use
  Company Number: US-PFIZER INC-2013010584

PATIENT
  Age: 51 Year
  Sex: Female

DRUGS (2)
  1. AZITHROMYCIN [Suspect]
     Indication: SINUSITIS
     Dosage: 250 MG, 2X/DAY
     Dates: start: 20121227
  2. AZITHROMYCIN [Suspect]
     Dosage: 250 MG, DAILY

REACTIONS (2)
  - Product packaging quantity issue [Unknown]
  - No adverse event [Unknown]
